FAERS Safety Report 8500481-8 (Version None)
Quarter: 2012Q3

REPORT INFORMATION
  Report Type: 
  Country: None (occurrence: None)
  Receive Date: 20120710
  Receipt Date: 20120627
  Transmission Date: 20120928
  Serious: No
  Sender: FDA-Public Use
  Company Number: US-ASTRAZENECA-2012SE43335

PATIENT
  Age: 59 Year
  Sex: Female
  Weight: 70.3 kg

DRUGS (6)
  1. SEROQUEL [Suspect]
     Dosage: 50-100 MG, DAILY
     Route: 048
  2. XANEX [Concomitant]
     Indication: ANXIETY
  3. WELLBUTRIN [Concomitant]
     Indication: MOOD ALTERED
  4. MELATONIN [Concomitant]
     Indication: SLEEP DISORDER
  5. MULTI-VITAMIN [Concomitant]
  6. SEROQUEL [Suspect]
     Indication: SLEEP DISORDER
     Route: 048

REACTIONS (2)
  - BLOOD GLUCOSE INCREASED [None]
  - OFF LABEL USE [None]
